FAERS Safety Report 5201635-9 (Version None)
Quarter: 2006Q4

REPORT INFORMATION
  Report Type: 
  Country: None (occurrence: None)
  Receive Date: 20061006
  Receipt Date: 20051225
  Transmission Date: 20070319
  Serious: Yes (Disabling)
  Sender: FDA-Public Use
  Company Number: 200511664BWH

PATIENT
  Age: 81 Year
  Sex: Male
  Weight: 88.4514 kg

DRUGS (2)
  1. CIPRO [Suspect]
     Indication: DIARRHOEA
     Dosage: 500 MG, QD, ORAL
     Route: 048
     Dates: start: 20050622
  2. CIPRO [Suspect]
     Indication: STOMACH DISCOMFORT
     Dosage: 500 MG, QD, ORAL
     Route: 048
     Dates: start: 20050622

REACTIONS (4)
  - INSOMNIA [None]
  - MOBILITY DECREASED [None]
  - PAIN IN EXTREMITY [None]
  - TENDONITIS [None]
